FAERS Safety Report 7369375-8 (Version None)
Quarter: 2011Q1

REPORT INFORMATION
  Report Type: 
  Country: None (occurrence: None)
  Receive Date: 20110323
  Receipt Date: 20110321
  Transmission Date: 20110831
  Serious: Yes (Hospitalization)
  Sender: FDA-Public Use
  Company Number: BR-ROCHE-766610

PATIENT
  Sex: Female
  Weight: 50 kg

DRUGS (4)
  1. LEVOID [Concomitant]
     Indication: THYROID DISORDER
     Dosage: FREQUENCY: 1 TABLET IN THE MORNING
     Dates: start: 20080101
  2. RIVOTRIL [Suspect]
     Indication: DEPRESSION
     Dosage: FREQUENCY: 1 TABLET AT NIGHT
     Route: 048
     Dates: start: 20060101
  3. SIMVASTATIN [Concomitant]
     Dosage: FREQUENCY: 1 TABLET AFTER DINNER
  4. PROCIMAX [Concomitant]
     Indication: DEPRESSION
     Dosage: FREQUENCY: 1 TABLET IN THE MORNING
     Dates: start: 20060101

REACTIONS (5)
  - MOOD ALTERED [None]
  - TREMOR [None]
  - SOCIAL AVOIDANT BEHAVIOUR [None]
  - ENDOMETRIOSIS [None]
  - INSOMNIA [None]
